FAERS Safety Report 7373946-2 (Version None)
Quarter: 2011Q1

REPORT INFORMATION
  Report Type: 
  Country: None (occurrence: None)
  Receive Date: 20110325
  Receipt Date: 20110323
  Transmission Date: 20110831
  Serious: No
  Sender: FDA-Public Use
  Company Number: US-PFIZER INC-2009189313

PATIENT
  Sex: Female
  Weight: 79.8 kg

DRUGS (9)
  1. VALSARTAN [Concomitant]
     Dosage: UNK
  2. CARBIDOPA + LEVODOPA [Concomitant]
     Dosage: UNK
  3. AROMASIN [Suspect]
     Indication: BREAST CANCER
     Dosage: 25 MG, 1X/DAY
     Dates: start: 20090201, end: 20090301
  4. ACETYLSALICYLIC ACID [Concomitant]
     Dosage: UNK
  5. TRIAMTERENE AND HYDROCHLOROTHIAZIDE [Concomitant]
     Dosage: UNK
  6. MIRAPEX [Concomitant]
     Dosage: UNK
  7. AMBIEN [Concomitant]
     Dosage: UNK
  8. PROPRANOLOL [Concomitant]
     Dosage: UNK
  9. LEXAPRO [Concomitant]
     Dosage: UNK

REACTIONS (1)
  - FAECES DISCOLOURED [None]
